FAERS Safety Report 23802272 (Version 1)
Quarter: 2024Q2

REPORT INFORMATION
  Report Type: Report from Study
  Country: US (occurrence: US)
  Receive Date: 20240501
  Receipt Date: 20240501
  Transmission Date: 20240716
  Serious: Yes (Other)
  Sender: FDA-Public Use
  Company Number: US-002147023-NVSC2024US077541

PATIENT
  Sex: Female

DRUGS (2)
  1. KISQALI [Suspect]
     Active Substance: RIBOCICLIB
     Indication: Breast cancer female
     Dosage: UNK
     Route: 065
  2. LETROZOLE [Concomitant]
     Active Substance: LETROZOLE
     Indication: Product used for unknown indication
     Dosage: UNK
     Route: 065

REACTIONS (19)
  - Renal impairment [Recovering/Resolving]
  - Nausea [Recovering/Resolving]
  - Dyspnoea [Unknown]
  - Dizziness [Recovering/Resolving]
  - Vomiting [Recovering/Resolving]
  - Red blood cell count decreased [Recovering/Resolving]
  - White blood cell count decreased [Recovering/Resolving]
  - Liver function test abnormal [Recovering/Resolving]
  - Platelet count decreased [Recovering/Resolving]
  - Fatigue [Unknown]
  - Headache [Recovering/Resolving]
  - Constipation [Recovering/Resolving]
  - Alopecia [Recovering/Resolving]
  - Rash [Recovering/Resolving]
  - Back pain [Recovering/Resolving]
  - Hypoglycaemia [Recovering/Resolving]
  - Infection [Recovering/Resolving]
  - Cough [Recovering/Resolving]
  - Dysstasia [Recovering/Resolving]
